FAERS Safety Report 7927089-7 (Version None)
Quarter: 2011Q4

REPORT INFORMATION
  Report Type: 
  Country: None (occurrence: None)
  Receive Date: 20111118
  Receipt Date: 20111115
  Transmission Date: 20120403
  Serious: No
  Sender: FDA-Public Use
  Company Number: US-TEVA-309575USA

PATIENT
  Sex: Male
  Weight: 101.7 kg

DRUGS (3)
  1. BETA BLOCKING AGENTS [Concomitant]
  2. PROAIR HFA [Suspect]
     Route: 055
     Dates: start: 20111114, end: 20111114
  3. TAMSULOSIN HCL [Concomitant]

REACTIONS (1)
  - DYSURIA [None]
